FAERS Safety Report 23893814 (Version 1)
Quarter: 2024Q2

REPORT INFORMATION
  Report Type: Spontaneous
  Country: US (occurrence: None)
  Receive Date: 20240524
  Receipt Date: 20240524
  Transmission Date: 20240715
  Serious: No
  Sender: FDA-Public Use
  Company Number: US-ROCHE-3359911

PATIENT
  Age: 63 Year
  Sex: Female

DRUGS (2)
  1. ACTEMRA [Suspect]
     Active Substance: TOCILIZUMAB
     Indication: Rheumatoid arthritis
     Route: 058
  2. ACTEMRA [Suspect]
     Active Substance: TOCILIZUMAB

REACTIONS (9)
  - Product dose omission issue [Unknown]
  - Accidental exposure to product [Unknown]
  - Pain [Unknown]
  - Device malfunction [Unknown]
  - Device leakage [Unknown]
  - Off label use [Unknown]
  - Joint effusion [Unknown]
  - Headache [Unknown]
  - Device issue [Unknown]

NARRATIVE: CASE EVENT DATE: 20230529
